FAERS Safety Report 11741817 (Version 1)
Quarter: 2015Q4

REPORT INFORMATION
  Report Type: Spontaneous
  Country: RO (occurrence: RO)
  Receive Date: 20151116
  Receipt Date: 20151116
  Transmission Date: 20160304
  Serious: Yes (Other)
  Sender: FDA-Public Use
  Company Number: RO-ACTAVIS-2015-24040

PATIENT
  Sex: Female

DRUGS (3)
  1. TOPIRAMATE (UNKNOWN) [Suspect]
     Active Substance: TOPIRAMATE
     Dosage: 25 MG, DAILY FIRST WEEK
     Route: 048
  2. TOPIRAMATE (UNKNOWN) [Suspect]
     Active Substance: TOPIRAMATE
     Indication: EPILEPSY
     Dosage: 75 MG, DAILY FROM THIRD WEEK
     Route: 048
  3. TOPIRAMATE (UNKNOWN) [Suspect]
     Active Substance: TOPIRAMATE
     Dosage: 50 MG, DAILY SECOND WEEK
     Route: 048

REACTIONS (1)
  - Seizure [Recovered/Resolved]
